FAERS Safety Report 19145703 (Version 2)
Quarter: 2021Q3

REPORT INFORMATION
  Report Type: Spontaneous
  Country: US (occurrence: US)
  Receive Date: 20210416
  Receipt Date: 20210921
  Transmission Date: 20211014
  Serious: No
  Sender: FDA-Public Use
  Company Number: US-LEO PHARMA-335591

PATIENT
  Age: 50 Year
  Sex: Female

DRUGS (1)
  1. TACROLIMUS. [Suspect]
     Active Substance: TACROLIMUS
     Indication: DRY SKIN
     Dates: start: 20210323, end: 20210324

REACTIONS (3)
  - Product use in unapproved indication [Unknown]
  - Skin burning sensation [Recovered/Resolved]
  - Erythema [Recovered/Resolved]
